FAERS Safety Report 8235748-4 (Version None)
Quarter: 2012Q1

REPORT INFORMATION
  Report Type: 
  Country: None (occurrence: None)
  Receive Date: 20120326
  Receipt Date: 20120321
  Transmission Date: 20120608
  Serious: Yes (Hospitalization)
  Sender: FDA-Public Use
  Company Number: PHHY2012JP015807

PATIENT
  Sex: Female
  Weight: 62 kg

DRUGS (9)
  1. EXELON [Suspect]
     Indication: DEMENTIA
     Dosage: 18 MG, DAILY
     Route: 062
     Dates: end: 20120220
  2. LENDORMIN [Concomitant]
     Dosage: 1 DF, UNK
     Route: 048
  3. LASIX [Concomitant]
     Route: 048
  4. PURSENNID [Concomitant]
     Dosage: 25 MG, UNK
     Route: 048
  5. CONTRAST MEDIA [Suspect]
     Indication: COMPUTERISED TOMOGRAM
  6. CEFAZOLIN SODIUM [Concomitant]
     Dosage: 3 DF, UNK
     Route: 048
  7. GRAMALIL [Concomitant]
     Dosage: 0.5 DF, UNK
     Route: 048
  8. MEMANTINE HCL [Concomitant]
     Dosage: 1 DF, UNK
     Route: 048
  9. NORVASC [Concomitant]
     Dosage: 1 DF, UNK
     Route: 048

REACTIONS (8)
  - ERYTHEMA MULTIFORME [None]
  - ERYTHEMA [None]
  - RASH PAPULAR [None]
  - PAPULE [None]
  - PERIVASCULAR DERMATITIS [None]
  - DERMATITIS CONTACT [None]
  - RASH [None]
  - PRURITUS [None]
